FAERS Safety Report 23356789 (Version 3)
Quarter: 2024Q1

REPORT INFORMATION
  Report Type: Spontaneous
  Country: JP (occurrence: JP)
  Receive Date: 20240102
  Receipt Date: 20240206
  Transmission Date: 20240410
  Serious: Yes (Death, Other)
  Sender: FDA-Public Use
  Company Number: JP-ASTELLAS-2023US039013

PATIENT
  Age: 85 Year
  Sex: Male

DRUGS (1)
  1. CRESEMBA [Suspect]
     Active Substance: ISAVUCONAZONIUM SULFATE
     Indication: Bronchopulmonary aspergillosis
     Route: 048
     Dates: start: 20231201

REACTIONS (1)
  - Acute myeloid leukaemia [Fatal]

NARRATIVE: CASE EVENT DATE: 20231220
